FAERS Safety Report 6891497-6 (Version None)
Quarter: 2010Q3

REPORT INFORMATION
  Report Type: 
  Country: None (occurrence: None)
  Receive Date: 20100731
  Receipt Date: 20080404
  Transmission Date: 20110219
  Serious: No
  Sender: FDA-Public Use
  Company Number: US-PFIZER INC-2007049863

PATIENT
  Sex: Male

DRUGS (3)
  1. CAVERJECT [Suspect]
     Indication: ERECTILE DYSFUNCTION
     Route: 050
     Dates: start: 20050401
  2. TYLENOL W/ CODEINE NO. 3 [Concomitant]
  3. TYLENOL W/ CODEINE NO. 4 [Concomitant]
     Dates: start: 20060706, end: 20060708

REACTIONS (2)
  - DEVICE FAILURE [None]
  - ERECTILE DYSFUNCTION [None]
